FAERS Safety Report 25008312 (Version 2)
Quarter: 2025Q1

REPORT INFORMATION
  Report Type: Report from Study
  Country: DE (occurrence: DE)
  Receive Date: 20250225
  Receipt Date: 20250228
  Transmission Date: 20250408
  Serious: Yes (Other)
  Sender: MERCK SHARP & DOHME LLC
  Company Number: DE-009507513-2258003

PATIENT
  Age: 46 Year
  Sex: Male

DRUGS (13)
  1. WINREVAIR [Suspect]
     Active Substance: SOTATERCEPT-CSRK
     Indication: Pulmonary arterial hypertension
     Dates: start: 20241126, end: 20250226
  2. WINREVAIR [Suspect]
     Active Substance: SOTATERCEPT-CSRK
     Indication: Pulmonary arterial hypertension
     Dates: start: 20241126
  3. WINREVAIR [Suspect]
     Active Substance: SOTATERCEPT-CSRK
  4. WINREVAIR [Suspect]
     Active Substance: SOTATERCEPT-CSRK
  5. RIOCIGUAT [Concomitant]
     Active Substance: RIOCIGUAT
     Route: 048
  6. MACITENTAN [Concomitant]
     Active Substance: MACITENTAN
  7. SELEXIPAG [Concomitant]
     Active Substance: SELEXIPAG
  8. Amytriptilin [Concomitant]
  9. PANTOPRAZOLE SODIUM [Concomitant]
     Active Substance: PANTOPRAZOLE SODIUM
  10. PANTOPRAZOLE SODIUM [Concomitant]
     Active Substance: PANTOPRAZOLE SODIUM
  11. EPLERENONE [Concomitant]
     Active Substance: EPLERENONE
  12. IVABRADINE [Concomitant]
     Active Substance: IVABRADINE
  13. FOSTER [Concomitant]
     Active Substance: BECLOMETHASONE\FORMOTEROL

REACTIONS (1)
  - Retinal detachment [Unknown]

NARRATIVE: CASE EVENT DATE: 20250226
